FAERS Safety Report 13043095 (Version 1)
Quarter: 2016Q4

REPORT INFORMATION
  Report Type: Spontaneous
  Country: US (occurrence: US)
  Receive Date: 20161219
  Receipt Date: 20161219
  Transmission Date: 20170207
  Serious: No
  Sender: FDA-Public Use
  Company Number: US-009507513-1612USA002726

PATIENT
  Sex: Female

DRUGS (3)
  1. BELSOMRA [Suspect]
     Active Substance: SUVOREXANT
     Indication: POOR QUALITY SLEEP
     Dosage: A COUPLE WEEKS AGO ON AND OFF
     Route: 048
     Dates: start: 201611
  2. BELSOMRA [Suspect]
     Active Substance: SUVOREXANT
     Indication: POOR QUALITY SLEEP
     Dosage: A COUPLE WEEKS AGO ON AND OFF
     Route: 048
     Dates: start: 201611
  3. ASPIRIN. [Concomitant]
     Active Substance: ASPIRIN

REACTIONS (2)
  - Abnormal dreams [Unknown]
  - Headache [Unknown]

NARRATIVE: CASE EVENT DATE: 2016
